FAERS Safety Report 4731047-3 (Version None)
Quarter: 2005Q3

REPORT INFORMATION
  Report Type: 
  Country: None (occurrence: None)
  Receive Date: 20050719
  Receipt Date: 20050106
  Transmission Date: 20060218
  Serious: Yes (Hospitalization)
  Sender: FDA-Public Use
  Company Number: 2005BI000555

PATIENT
  Age: 66 Year
  Sex: Female

DRUGS (6)
  1. AVONEX [Suspect]
     Indication: MULTIPLE SCLEROSIS
     Dosage: QW; IM
     Route: 030
     Dates: start: 20030101, end: 20050101
  2. AMANTADINE [Concomitant]
  3. VITAMIN B COMPLEX CAP [Concomitant]
  4. NEURONTIN [Concomitant]
  5. XANAX [Concomitant]
  6. MULTI-VITAMINS [Concomitant]

REACTIONS (9)
  - CHEST DISCOMFORT [None]
  - INFLUENZA LIKE ILLNESS [None]
  - INJECTION SITE REACTION [None]
  - MASTOIDITIS [None]
  - MOOD SWINGS [None]
  - RELAPSING-REMITTING MULTIPLE SCLEROSIS [None]
  - RESPIRATORY TRACT INFECTION [None]
  - SENSORY DISTURBANCE [None]
  - URINARY RETENTION [None]
